FAERS Safety Report 4434463-2 (Version None)
Quarter: 2004Q3

REPORT INFORMATION
  Report Type: 
  Country: None (occurrence: None)
  Receive Date: 20040726
  Receipt Date: 20040511
  Transmission Date: 20050211
  Serious: No
  Sender: FDA-Public Use
  Company Number: USA040259675

PATIENT
  Age: 80 Year
  Sex: Female
  Weight: 59 kg

DRUGS (7)
  1. FORTEO [Suspect]
     Indication: OSTEOPOROSIS
     Dosage: 20 UG/1 DAY
     Dates: start: 20030731
  2. ATACAND [Concomitant]
  3. LASIX [Concomitant]
  4. CALCIUM CARBONATE [Concomitant]
  5. MULTI-VITAMIN [Concomitant]
  6. VITAMIN E [Concomitant]
  7. VITAMIN C [Concomitant]

REACTIONS (1)
  - HYPERCALCAEMIA [None]
